FAERS Safety Report 8228347-1 (Version None)
Quarter: 2012Q1

REPORT INFORMATION
  Report Type: 
  Country: None (occurrence: None)
  Receive Date: 20120322
  Receipt Date: 20110921
  Transmission Date: 20120608
  Serious: Yes (Other)
  Sender: FDA-Public Use
  Company Number: US-BRISTOL-MYERS SQUIBB COMPANY-16086043

PATIENT
  Age: 55 Year
  Sex: Male

DRUGS (14)
  1. NOVOLOG [Concomitant]
     Indication: TYPE 1 DIABETES MELLITUS
     Dosage: 1DF: 12UNITS.
  2. PHENERGAN [Concomitant]
     Dosage: 6 HRS.
     Route: 048
  3. ERBITUX [Suspect]
     Dates: start: 20110919, end: 20110919
  4. LEVOTHYROXINE SODIUM [Concomitant]
     Route: 048
  5. TYLENOL [Concomitant]
     Indication: PREMEDICATION
     Route: 048
  6. DECADRON [Concomitant]
     Indication: PREMEDICATION
     Route: 042
  7. VITAMIN B-12 [Concomitant]
     Dosage: OTC.
     Route: 048
  8. LANTUS [Concomitant]
     Indication: TYPE 1 DIABETES MELLITUS
     Dosage: 1DF: 50UNITS.
  9. LISINOPRIL [Concomitant]
     Route: 048
  10. SIMVASTATIN [Concomitant]
     Route: 048
  11. CETIRIZINE [Concomitant]
  12. BENADRYL [Concomitant]
     Indication: PREMEDICATION
     Route: 042
  13. PEPCID [Concomitant]
     Indication: PREMEDICATION
  14. HYDROCODONE BITARTRATE AND ACETAMINOPHEN [Concomitant]
     Dosage: 1DF: 7.5/500MG.
     Route: 048

REACTIONS (5)
  - LACRIMATION INCREASED [None]
  - RASH [None]
  - CHEST DISCOMFORT [None]
  - THROAT TIGHTNESS [None]
  - COUGH [None]
